FAERS Safety Report 22198548 (Version 1)
Quarter: 2023Q2

REPORT INFORMATION
  Report Type: Spontaneous
  Country: IN (occurrence: None)
  Receive Date: 20230411
  Receipt Date: 20230411
  Transmission Date: 20230722
  Serious: Yes (Other)
  Sender: FDA-Public Use
  Company Number: 2023A083604

PATIENT

DRUGS (1)
  1. FASENRA [Suspect]
     Active Substance: BENRALIZUMAB
     Indication: Asthma
     Dosage: 30.0MG ONCE/SINGLE ADMINISTRATION
     Route: 058
     Dates: start: 20230324, end: 20230324

REACTIONS (2)
  - Asthenia [Unknown]
  - Headache [Unknown]
